FAERS Safety Report 7161771-7 (Version None)
Quarter: 2010Q4

REPORT INFORMATION
  Report Type: 
  Country: None (occurrence: None)
  Receive Date: 20101201
  Receipt Date: 20101116
  Transmission Date: 20110411
  Serious: Yes (Hospitalization)
  Sender: FDA-Public Use
  Company Number: 1000009778

PATIENT
  Age: 82 Year
  Sex: Female

DRUGS (10)
  1. NEBIVOLOL HCL [Suspect]
     Indication: HYPERTENSION
     Dates: start: 20080409, end: 20081118
  2. TORSEMIDE [Suspect]
     Indication: HYPERTENSION
     Dates: start: 20080409, end: 20081118
  3. RASILEZ (ALISKIREN) [Suspect]
     Indication: HYPERTENSION
     Dosage: 300 MG 9300 MG, 1 IN 1 D)
     Dates: start: 20081006, end: 20081118
  4. EXFORGE HCT [Suspect]
     Indication: HYPERTENSION
     Dosage: 10 MG + 160 MG + 12.5 MG (1 IN 1 D)
     Dates: start: 20080409, end: 20081118
  5. ERBRANTIL (URAPIDIL) [Suspect]
     Indication: HYPERTENSION
     Dates: start: 20080409, end: 20081118
  6. CORVATON (MOLSIDOMINE) (MOLSIDOMINE) [Concomitant]
  7. ASS (ACETYLSALICYLIC ACID) (ACETYLSALICYLIC ACID) [Concomitant]
  8. SIMVASTATIN [Concomitant]
  9. SPIRIVA (TIOTROPIUM BROMIDE (TIOTROPIUM BROMIDE) [Concomitant]
  10. FORADIL (FORMOTEROL FUMARATE) (FORMOTEROL FUMARATE) [Concomitant]

REACTIONS (4)
  - BLOOD CREATININE INCREASED [None]
  - BLOOD POTASSIUM INCREASED [None]
  - HYPOTENSION [None]
  - VERTIGO [None]
